FAERS Safety Report 24307192 (Version 1)
Quarter: 2024Q3

REPORT INFORMATION
  Report Type: Spontaneous
  Country: US (occurrence: None)
  Receive Date: 20240910
  Receipt Date: 20240910
  Transmission Date: 20241017
  Serious: No
  Sender: Public
  Company Number: None

PATIENT
  Age: 65 Year
  Sex: Female

DRUGS (15)
  1. REPATHA [Suspect]
     Active Substance: EVOLOCUMAB
     Dosage: 1 ML EVERY 2 WEEKS SUBCUTANEOUS?
     Route: 058
     Dates: start: 20220322, end: 20240910
  2. LIDOCAINE PAIN RELIEF 4% PATCH [Concomitant]
  3. LOSARTAN [Concomitant]
     Active Substance: LOSARTAN\LOSARTAN POTASSIUM
  4. METOPROLOL ER SUCCINATE 50MG TABS [Concomitant]
  5. MULTIVITAMIN IRON-FREE TABLETS [Concomitant]
  6. CLOPIDOGREL 75MG TABLETS [Concomitant]
  7. TIZANIDINE [Concomitant]
     Active Substance: TIZANIDINE
  8. PROTONIX 40MG TABLETS [Concomitant]
  9. VITAMIN D3 50,000 IU (CHOLE) CAP [Concomitant]
  10. SYNTHROID 0.075MG (75MCG)TABLETS [Concomitant]
  11. VITAMIN B12 2000MCG TABLETS 60^S [Concomitant]
  12. ASPIRIN 81MG EC LOW DOSE TABLETS [Concomitant]
  13. FUROSEMIDE [Concomitant]
     Active Substance: FUROSEMIDE
  14. GABAPENTIN 600MG TABLETS [Concomitant]
  15. TEMAZEPAM [Concomitant]
     Active Substance: TEMAZEPAM

REACTIONS (4)
  - Bladder disorder [None]
  - Urinary tract infection [None]
  - Migraine [None]
  - Back pain [None]

NARRATIVE: CASE EVENT DATE: 20240910
